FAERS Safety Report 9097908 (Version 1)
Quarter: 2013Q1

REPORT INFORMATION
  Report Type: Spontaneous
  Country: US (occurrence: US)
  Receive Date: 20130212
  Receipt Date: 20130212
  Transmission Date: 20140127
  Serious: No
  Sender: FDA-Public Use
  Company Number: US-PFIZER INC-2013054932

PATIENT
  Age: 39 Year
  Sex: Female
  Weight: 129.25 kg

DRUGS (2)
  1. ADVIL [Suspect]
     Indication: TOOTHACHE
     Dosage: 200 MG, ONCE A DAY
     Route: 048
  2. TOPROL [Concomitant]
     Indication: TACHYCARDIA
     Dosage: UNK

REACTIONS (3)
  - Incorrect dose administered [Unknown]
  - Fatigue [Unknown]
  - Somnolence [Unknown]
